FAERS Safety Report 16119545 (Version 1)
Quarter: 2019Q1

REPORT INFORMATION
  Report Type: Spontaneous
  Country: US (occurrence: US)
  Receive Date: 20190326
  Receipt Date: 20190326
  Transmission Date: 20190418
  Serious: No
  Sender: FDA-Public Use
  Company Number: US-BRISTOL-MYERS SQUIBB COMPANY-BMS-2019-029826

PATIENT
  Sex: Male

DRUGS (1)
  1. KENALOG-40 [Suspect]
     Active Substance: TRIAMCINOLONE ACETONIDE
     Indication: PLANTAR FASCIITIS
     Dosage: UNAVAILABLE
     Route: 065
     Dates: start: 20181222

REACTIONS (3)
  - Depression [Unknown]
  - Anxiety [Unknown]
  - Tremor [Unknown]
